FAERS Safety Report 4398688-7 (Version None)
Quarter: 2004Q3

REPORT INFORMATION
  Report Type: 
  Country: None (occurrence: None)
  Receive Date: 20040715
  Receipt Date: 20040706
  Transmission Date: 20050211
  Serious: Yes (Hospitalization)
  Sender: FDA-Public Use
  Company Number: PHRM2004FR02307

PATIENT
  Age: 54 Year
  Sex: Male

DRUGS (5)
  1. MIFLONIL [Suspect]
     Indication: ASTHMA
     Dosage: 1 DF, TID
     Dates: start: 20040521, end: 20040523
  2. FORADIL [Suspect]
     Indication: ASTHMA
     Dosage: 12 UG, TID
     Dates: start: 20040521, end: 20040523
  3. TRENTADIL [Suspect]
     Indication: ASTHMA
     Dosage: 600 MG, BID
     Route: 048
     Dates: start: 20040521, end: 20040523
  4. INIPOMP [Suspect]
     Dosage: 40 MG, BID
     Route: 048
     Dates: start: 20040521, end: 20040523
  5. AMBROXOL HYDROCHLORIDE [Suspect]
     Dosage: 10 ML, TID
     Route: 048
     Dates: start: 20040521

REACTIONS (3)
  - ACUTE GENERALISED EXANTHEMATOUS PUSTULOSIS [None]
  - EXANTHEM [None]
  - RASH PUSTULAR [None]
